FAERS Safety Report 4571769-0 (Version None)
Quarter: 2005Q1

REPORT INFORMATION
  Report Type: 
  Country: None (occurrence: None)
  Receive Date: 20050202
  Receipt Date: 20050202
  Transmission Date: 20050727
  Serious: Yes (Hospitalization)
  Sender: FDA-Public Use
  Company Number: None

PATIENT
  Sex: Male

DRUGS (4)
  1. RITUXAN [Suspect]
     Indication: NON-HODGKIN'S LYMPHOMA STAGE IV
     Dosage: INITIAL INFUSI   INTRA CORP
     Route: 042
     Dates: start: 20040309, end: 20040309
  2. ASPIRIN [Concomitant]
  3. LIPITOR [Concomitant]
  4. TRANDATE [Concomitant]

REACTIONS (3)
  - DELIRIUM [None]
  - HYPERSENSITIVITY [None]
  - PYREXIA [None]
